FAERS Safety Report 4868741-X (Version None)
Quarter: 2005Q4

REPORT INFORMATION
  Report Type: 
  Country: None (occurrence: None)
  Receive Date: 20051223
  Receipt Date: 20051215
  Transmission Date: 20060501
  Serious: Yes (Hospitalization)
  Sender: FDA-Public Use
  Company Number: 2005168426

PATIENT
  Age: 67 Year
  Sex: Male

DRUGS (5)
  1. FRAGMIN [Suspect]
     Dosage: 1 DOSAGE FORM TWICE A DAY, SUBCUTANEOUS
     Route: 058
  2. ASPIRIN [Suspect]
     Indication: OSTEOARTHRITIS
     Dosage: ORAL
     Route: 048
     Dates: end: 20030910
  3. OMEPRAZOLE [Suspect]
     Dosage: 1 DOSAGE FORM TWICE A DAY ORAL
     Route: 048
  4. ATARAX [Concomitant]
  5. LISINOPRIL [Concomitant]

REACTIONS (2)
  - GASTROINTESTINAL ANGIODYSPLASIA [None]
  - MELAENA [None]
